FAERS Safety Report 8824824 (Version 3)
Quarter: 2014Q2

REPORT INFORMATION
  Report Type: Report from Study
  Country: CA (occurrence: CA)
  Receive Date: 20121004
  Receipt Date: 20140523
  Transmission Date: 20141212
  Serious: Yes (Hospitalization)
  Sender: FDA-Public Use
  Company Number: CA-JNJFOC-20120910116

PATIENT
  Age: 44 Year
  Sex: Male
  Weight: 100.9 kg

DRUGS (9)
  1. REMICADE [Suspect]
     Indication: PSORIASIS
     Dosage: AT EVERY 0, 2 AND 4 WEEKS
     Route: 042
     Dates: start: 20120821
  2. REMICADE [Suspect]
     Indication: PSORIASIS
     Route: 042
     Dates: start: 20120807
  3. REMICADE [Suspect]
     Indication: PSORIASIS
     Route: 042
     Dates: start: 20120918, end: 20121010
  4. NEXIUM [Concomitant]
     Indication: GASTROOESOPHAGEAL REFLUX DISEASE
     Route: 065
  5. VIAGRA [Concomitant]
     Indication: ERECTILE DYSFUNCTION
     Route: 065
  6. LISINOPRIL [Concomitant]
     Indication: HYPERTENSION
     Route: 065
  7. DILTIAZEM CD [Concomitant]
     Indication: HYPERTENSION
     Route: 065
  8. PRISTIQ [Concomitant]
     Indication: DEPRESSION
     Route: 065
  9. ZYLOPRIM [Concomitant]
     Route: 048

REACTIONS (7)
  - Pain [Recovering/Resolving]
  - Vomiting [Recovering/Resolving]
  - Pyrexia [Recovering/Resolving]
  - Nausea [Recovering/Resolving]
  - Asthenia [Recovering/Resolving]
  - Infusion related reaction [Recovered/Resolved]
  - Pruritus [Recovered/Resolved]
